FAERS Safety Report 19050985 (Version 2)
Quarter: 2021Q2

REPORT INFORMATION
  Report Type: Spontaneous
  Country: US (occurrence: US)
  Receive Date: 20210323
  Receipt Date: 20210408
  Transmission Date: 20210717
  Serious: No
  Sender: FDA-Public Use
  Company Number: US-IGSA-BIG0013753

PATIENT
  Age: 15 Year
  Sex: Female
  Weight: 66.7 kg

DRUGS (14)
  1. ATOVAQUONE. [Concomitant]
     Active Substance: ATOVAQUONE
  2. ENOXAPARIN [Concomitant]
     Active Substance: ENOXAPARIN
  3. LISINOPRIL. [Concomitant]
     Active Substance: LISINOPRIL
  4. FERROUS SULFATE. [Concomitant]
     Active Substance: FERROUS SULFATE
  5. FAMOTIDINE. [Concomitant]
     Active Substance: FAMOTIDINE
  6. SODIUM BICARBONATE. [Concomitant]
     Active Substance: SODIUM BICARBONATE
  7. GAMUNEX?C [Suspect]
     Active Substance: HUMAN IMMUNOGLOBULIN G
     Indication: HYPOGAMMAGLOBULINAEMIA
     Dosage: 30 GRAM, TOTAL
     Dates: start: 20210127, end: 20210127
  8. GAMUNEX?C [Suspect]
     Active Substance: HUMAN IMMUNOGLOBULIN G
     Dosage: UNK
     Route: 042
     Dates: start: 20210127, end: 20210127
  9. GAMUNEX?C [Suspect]
     Active Substance: HUMAN IMMUNOGLOBULIN G
     Dosage: 30 GRAM, Q.2WK.
     Route: 042
     Dates: start: 20191024
  10. ACETAMINOPHEN. [Concomitant]
     Active Substance: ACETAMINOPHEN
     Indication: PREMEDICATION
     Dosage: 500 MILLIGRAM, QD
     Route: 048
     Dates: start: 20210127, end: 20210127
  11. TOCILIZUMAB. [Concomitant]
     Active Substance: TOCILIZUMAB
  12. DIPHENHYDRAMINE. [Concomitant]
     Active Substance: DIPHENHYDRAMINE
     Indication: PREMEDICATION
     Dosage: 25 MILLIGRAM, QD
     Route: 048
     Dates: start: 20210127, end: 20210127
  13. MYCOPHENOLATE [Concomitant]
     Active Substance: MYCOPHENOLIC ACID
  14. PREDNISONE. [Concomitant]
     Active Substance: PREDNISONE

REACTIONS (2)
  - Pruritus [Recovered/Resolved]
  - Urticaria [Recovered/Resolved]

NARRATIVE: CASE EVENT DATE: 20210127
